FAERS Safety Report 24327697 (Version 1)
Quarter: 2024Q3

REPORT INFORMATION
  Report Type: Spontaneous
  Country: DE (occurrence: DE)
  Receive Date: 20240917
  Receipt Date: 20240917
  Transmission Date: 20241017
  Serious: Yes (Hospitalization, Other)
  Sender: PFIZER
  Company Number: DE-SANDOZ-SDZ2024DE077140

PATIENT
  Sex: Male
  Weight: 87 kg

DRUGS (8)
  1. PANTOPRAZOLE [Suspect]
     Active Substance: PANTOPRAZOLE
     Dosage: 40 MILLIGRAM, QD
     Dates: start: 202408
  2. FOLIC ACID [Suspect]
     Active Substance: FOLIC ACID
     Dosage: UNK, 1X/DAY
     Dates: start: 202406
  3. COTRIM [Suspect]
     Active Substance: SULFAMETHOXAZOLE\TRIMETHOPRIM
     Dosage: UNK, 1X/DAY
     Dates: start: 202406
  4. OXYCODONE HYDROCHLORIDE [Suspect]
     Active Substance: OXYCODONE HYDROCHLORIDE
     Dosage: 20 MG, 1X/DAY
     Dates: start: 202406
  5. TICAGRELOR [Suspect]
     Active Substance: TICAGRELOR
     Dosage: 180 MG, 1X/DAY
     Dates: start: 201408
  6. SODIUM BICARBONATE [Suspect]
     Active Substance: SODIUM BICARBONATE
     Dosage: UNK, 1X/DAY
     Dates: start: 202408, end: 20240830
  7. METAMIZOLE [Suspect]
     Active Substance: METAMIZOLE
     Dosage: UNK, 1X/DAY
     Dates: start: 202406
  8. FERROUS GLYCINE SULFATE [Suspect]
     Active Substance: FERROUS GLYCINE SULFATE
     Dosage: UNK, 1X/DAY
     Dates: start: 202406

REACTIONS (8)
  - Urinary tract infection [Recovered/Resolved]
  - Sepsis [Recovered/Resolved]
  - Weight decreased [Not Recovered/Not Resolved]
  - Spinal stenosis [Unknown]
  - Decreased appetite [Unknown]
  - Nausea [Not Recovered/Not Resolved]
  - Vomiting [Unknown]
  - Taste disorder [Unknown]
